FAERS Safety Report 19179857 (Version 1)
Quarter: 2021Q2

REPORT INFORMATION
  Report Type: Spontaneous
  Country: GB (occurrence: GB)
  Receive Date: 20210426
  Receipt Date: 20210426
  Transmission Date: 20210717
  Serious: Yes (Other)
  Sender: FDA-Public Use
  Company Number: GB-TEVA-2021-GB-1903923

PATIENT
  Age: 34 Year
  Sex: Female
  Weight: 55.33 kg

DRUGS (14)
  1. TRIMETHOPRIM. [Suspect]
     Active Substance: TRIMETHOPRIM
     Indication: URINARY TRACT INFECTION
     Dosage: 400 MILLIGRAM DAILY;
     Route: 048
     Dates: start: 20210409, end: 20210412
  2. MEDROXYPROGESTERONE ACETATE. [Concomitant]
     Active Substance: MEDROXYPROGESTERONE ACETATE
  3. FOLIC ACID. [Concomitant]
     Active Substance: FOLIC ACID
  4. HYOSCINE BUTYLBROMIDE [Concomitant]
     Active Substance: BUTYLSCOPOLAMINE BROMIDE
  5. LANSOPRAZOL [Concomitant]
     Active Substance: LANSOPRAZOLE
  6. LEVOTHYROXINE SODIUM. [Concomitant]
     Active Substance: LEVOTHYROXINE SODIUM
  7. ETODOLAC. [Concomitant]
     Active Substance: ETODOLAC
  8. SELENIUM [Concomitant]
     Active Substance: SELENIUM
  9. CANESTEN FLUCONAZOLE [Concomitant]
     Active Substance: FLUCONAZOLE
  10. COENZYME Q10 [Concomitant]
     Active Substance: DIETARY SUPPLEMENT\UBIDECARENONE
  11. IBUPROFEN. [Concomitant]
     Active Substance: IBUPROFEN
  12. VITAMIN D2 [Concomitant]
     Active Substance: ERGOCALCIFEROL
  13. VOLTAROL EMULGEL P [Concomitant]
     Active Substance: DICLOFENAC DIETHYLAMINE
  14. SYNDOL [Concomitant]

REACTIONS (1)
  - Lip swelling [Not Recovered/Not Resolved]

NARRATIVE: CASE EVENT DATE: 20210410
